FAERS Safety Report 16254948 (Version 1)
Quarter: 2019Q2

REPORT INFORMATION
  Report Type: Spontaneous
  Country: JP (occurrence: JP)
  Receive Date: 20190430
  Receipt Date: 20190430
  Transmission Date: 20190711
  Serious: Yes (Hospitalization, Other)
  Sender: FDA-Public Use
  Company Number: JP-TEVA-2019-JP-1043620

PATIENT
  Age: 51 Year
  Sex: Male

DRUGS (7)
  1. VANCOMYCIN [Suspect]
     Active Substance: VANCOMYCIN
     Indication: LOCALISED INFECTION
  2. VANCOMYCIN [Suspect]
     Active Substance: VANCOMYCIN
     Indication: STAPHYLOCOCCAL INFECTION
  3. LINEZOLID. [Suspect]
     Active Substance: LINEZOLID
     Indication: STAPHYLOCOCCAL INFECTION
  4. VANCOMYCIN [Suspect]
     Active Substance: VANCOMYCIN
     Indication: INFECTIVE TENOSYNOVITIS
     Route: 065
  5. INSULIN [Suspect]
     Active Substance: INSULIN NOS
     Indication: DIABETES MELLITUS
     Dosage: IN THE UPPER LEFT ARM
     Route: 003
  6. LINEZOLID. [Suspect]
     Active Substance: LINEZOLID
     Indication: LOCALISED INFECTION
  7. LINEZOLID. [Suspect]
     Active Substance: LINEZOLID
     Indication: INFECTIVE TENOSYNOVITIS
     Route: 065

REACTIONS (5)
  - Blood potassium increased [Recovered/Resolved]
  - Localised infection [Recovered/Resolved]
  - Renal impairment [Recovered/Resolved]
  - Infective tenosynovitis [Recovered/Resolved]
  - Staphylococcal infection [Recovered/Resolved]
